FAERS Safety Report 16282560 (Version 1)
Quarter: 2019Q2

REPORT INFORMATION
  Report Type: Spontaneous
  Country: US (occurrence: US)
  Receive Date: 20190507
  Receipt Date: 20190507
  Transmission Date: 20190711
  Serious: Yes (Other)
  Sender: FDA-Public Use
  Company Number: US-BRISTOL-MYERS SQUIBB COMPANY-BMS-2019-043393

PATIENT
  Sex: Female

DRUGS (1)
  1. ELIQUIS [Suspect]
     Active Substance: APIXABAN
     Indication: CEREBROVASCULAR ACCIDENT PROPHYLAXIS
     Dosage: UNAVAILABLE
     Route: 048
     Dates: start: 201901

REACTIONS (4)
  - Cough [Unknown]
  - Oxygen saturation decreased [Unknown]
  - Wheezing [Unknown]
  - Dyspnoea [Unknown]

NARRATIVE: CASE EVENT DATE: 201901
